FAERS Safety Report 15226338 (Version 1)
Quarter: 2018Q3

REPORT INFORMATION
  Report Type: Spontaneous
  Country: US (occurrence: US)
  Receive Date: 20180801
  Receipt Date: 20180801
  Transmission Date: 20181010
  Serious: Yes (Life-Threatening, Hospitalization, Other)
  Sender: FDA-Public Use
  Company Number: US-LUPIN PHARMACEUTICALS INC.-2018-05415

PATIENT
  Age: 12 Year
  Sex: Male

DRUGS (1)
  1. OSELTAMIVIR [Suspect]
     Active Substance: OSELTAMIVIR
     Indication: PRODUCT USED FOR UNKNOWN INDICATION
     Dosage: UNK
     Route: 065

REACTIONS (5)
  - Obliterative bronchiolitis [Recovering/Resolving]
  - Stevens-Johnson syndrome [Recovering/Resolving]
  - Respiratory failure [Recovering/Resolving]
  - Pneumonia mycoplasmal [Recovering/Resolving]
  - Respiratory distress [Recovering/Resolving]
